FAERS Safety Report 24262058 (Version 1)
Quarter: 2024Q3

REPORT INFORMATION
  Report Type: Spontaneous
  Country: US (occurrence: None)
  Receive Date: 20240829
  Receipt Date: 20240829
  Transmission Date: 20241017
  Serious: Yes (Hospitalization, Other)
  Sender: ASTRAZENECA
  Company Number: 2024A193902

PATIENT
  Age: 869 Month
  Sex: Female
  Weight: 75.2 kg

DRUGS (2)
  1. SELUMETINIB [Suspect]
     Active Substance: SELUMETINIB
     Dosage: 600 MG TOTAL DOSE
     Route: 048
     Dates: start: 20240730, end: 20240803
  2. OLAPARIB [Suspect]
     Active Substance: OLAPARIB
     Dosage: 2400 MG TOTAL DOSE
     Route: 048
     Dates: start: 20240730, end: 20240803

REACTIONS (15)
  - Fatigue [Unknown]
  - Sepsis [Unknown]
  - Fall [Unknown]
  - Hyponatraemia [Unknown]
  - Acute kidney injury [Unknown]
  - Abdominal abscess [Unknown]
  - Pelvic discomfort [Unknown]
  - Peritonitis [Unknown]
  - Pulmonary embolism [Unknown]
  - Gastrointestinal neoplasm [Unknown]
  - Pneumonia [Unknown]
  - Mobility decreased [Unknown]
  - Osteoarthritis [Unknown]
  - Hypophagia [Unknown]
  - Urinary tract infection [Unknown]

NARRATIVE: CASE EVENT DATE: 20240803
